FAERS Safety Report 7096935-4 (Version None)
Quarter: 2010Q4

REPORT INFORMATION
  Report Type: 
  Country: None (occurrence: None)
  Receive Date: 20101111
  Receipt Date: 20100302
  Transmission Date: 20110411
  Serious: No
  Sender: FDA-Public Use
  Company Number: US-KINGPHARMUSA00001-K201000264

PATIENT
  Sex: Female
  Weight: 73.923 kg

DRUGS (5)
  1. FLECTOR [Suspect]
     Indication: BACK PAIN
     Dosage: 1 PATCH, Q12 HOURS, PRN
     Dates: start: 20091203, end: 20091201
  2. FLECTOR [Suspect]
     Dosage: 1 PATCH, Q12 HOURS, PRN
     Dates: start: 20091201, end: 20091201
  3. FLECTOR [Suspect]
     Dosage: 1 PATCH, Q12 HOURS, PRN
     Dates: start: 20081125
  4. LIPITOR [Concomitant]
     Dosage: 20 MG, UNK
  5. FOSAMAX PLUS D [Concomitant]

REACTIONS (3)
  - APPLICATION SITE PRURITUS [None]
  - APPLICATION SITE RASH [None]
  - EXCORIATION [None]
